FAERS Safety Report 6822259-3 (Version None)
Quarter: 2010Q3

REPORT INFORMATION
  Report Type: 
  Country: None (occurrence: None)
  Receive Date: 20100708
  Receipt Date: 20100629
  Transmission Date: 20110219
  Serious: Yes (Disabling)
  Sender: FDA-Public Use
  Company Number: GB-ASTRAZENECA-2010SE31094

PATIENT
  Sex: Female

DRUGS (1)
  1. FELODIPINE [Suspect]
     Route: 048
     Dates: start: 20020101

REACTIONS (4)
  - ABASIA [None]
  - BLINDNESS [None]
  - DIABETES MELLITUS [None]
  - HYPOKINESIA [None]
